FAERS Safety Report 4764977-7 (Version None)
Quarter: 2005Q3

REPORT INFORMATION
  Report Type: 
  Country: None (occurrence: None)
  Receive Date: 20050909
  Receipt Date: 20050830
  Transmission Date: 20060218
  Serious: Yes (Hospitalization)
  Sender: FDA-Public Use
  Company Number: BR-ROCHE-416220

PATIENT
  Age: 15 Year
  Sex: Male

DRUGS (3)
  1. ROACUTAN [Suspect]
     Indication: ACNE
     Dosage: STRENGTH REPORTED AS 20 MG TAKEN FOR A FEW DAYS
     Route: 048
     Dates: start: 20040615, end: 20040615
  2. ROACUTAN [Suspect]
     Route: 048
     Dates: start: 20040615, end: 20040615
  3. ROACUTAN [Suspect]
     Dosage: STRENGTH REPORTED AS 10 MG
     Route: 048
     Dates: start: 20050315, end: 20050315

REACTIONS (3)
  - BLOOD TRIGLYCERIDES INCREASED [None]
  - DEPRESSION [None]
  - MENTAL DISORDER [None]
